FAERS Safety Report 4323142-8 (Version None)
Quarter: 2004Q1

REPORT INFORMATION
  Report Type: 
  Country: None (occurrence: None)
  Receive Date: 20040322
  Receipt Date: 20040312
  Transmission Date: 20041129
  Serious: Yes (Other)
  Sender: FDA-Public Use
  Company Number: 2004203533US

PATIENT
  Sex: Male

DRUGS (1)
  1. COVERA-HS [Suspect]

REACTIONS (1)
  - DEEP VEIN THROMBOSIS [None]
